FAERS Safety Report 17351113 (Version 4)
Quarter: 2020Q2

REPORT INFORMATION
  Report Type: Report from Study
  Country: None (occurrence: NL)
  Receive Date: 20200130
  Receipt Date: 20200518
  Transmission Date: 20200713
  Serious: Yes (Death, Other)
  Sender: FDA-Public Use
  Company Number: NL-ABBVIE-18K-114-2333251-00

PATIENT
  Age: 77 Year
  Sex: Male
  Weight: 55 kg

DRUGS (4)
  1. DUODOPA [Suspect]
     Active Substance: CARBIDOPA\LEVODOPA
     Dosage: STRENGTH: 20 MG/ML 5 MG/ML
     Route: 050
  2. VITAMIN B6 [Concomitant]
     Active Substance: PYRIDOXINE HYDROCHLORIDE
     Indication: VITAMIN B6 DECREASED
  3. DUODOPA [Suspect]
     Active Substance: CARBIDOPA\LEVODOPA
     Indication: PARKINSON^S DISEASE
     Dosage: MD: 10.0, CD: 4.9, ED: 2.0, CND: 2.5
     Route: 050
     Dates: start: 20161205
  4. DUODOPA [Suspect]
     Active Substance: CARBIDOPA\LEVODOPA
     Dosage: MD : 5, CD : 5.2, ED : 3, ND : 3.1
     Route: 050

REACTIONS (47)
  - Mobility decreased [Not Recovered/Not Resolved]
  - Feeling abnormal [Not Recovered/Not Resolved]
  - Hypophagia [Not Recovered/Not Resolved]
  - Tension [Not Recovered/Not Resolved]
  - Constipation [Not Recovered/Not Resolved]
  - On and off phenomenon [Not Recovered/Not Resolved]
  - Stoma site haemorrhage [Not Recovered/Not Resolved]
  - Muscular weakness [Not Recovered/Not Resolved]
  - General physical health deterioration [Not Recovered/Not Resolved]
  - Hallucination [Not Recovered/Not Resolved]
  - Stoma site discharge [Recovered/Resolved]
  - Death [Fatal]
  - Hypophagia [Recovered/Resolved]
  - Mental impairment [Not Recovered/Not Resolved]
  - Asthenia [Not Recovered/Not Resolved]
  - Abdominal distension [Not Recovered/Not Resolved]
  - Dyskinesia [Not Recovered/Not Resolved]
  - Unevaluable event [Not Recovered/Not Resolved]
  - Fibroma [Recovered/Resolved]
  - Decreased appetite [Not Recovered/Not Resolved]
  - Polyneuropathy [Not Recovered/Not Resolved]
  - Anxiety [Not Recovered/Not Resolved]
  - Hypokinesia [Not Recovered/Not Resolved]
  - Wound [Recovered/Resolved]
  - Nephrolithiasis [Recovered/Resolved]
  - Fear [Not Recovered/Not Resolved]
  - Weight decreased [Not Recovered/Not Resolved]
  - Fatigue [Not Recovered/Not Resolved]
  - Somnolence [Not Recovered/Not Resolved]
  - Parkinson^s disease [Not Recovered/Not Resolved]
  - Acute leukaemia [Not Recovered/Not Resolved]
  - Fine motor skill dysfunction [Not Recovered/Not Resolved]
  - Cystitis [Not Recovered/Not Resolved]
  - Disturbance in attention [Not Recovered/Not Resolved]
  - Stress [Not Recovered/Not Resolved]
  - Muscle spasms [Not Recovered/Not Resolved]
  - Fall [Not Recovered/Not Resolved]
  - Tremor [Not Recovered/Not Resolved]
  - Freezing phenomenon [Not Recovered/Not Resolved]
  - Stoma complication [Recovered/Resolved]
  - Memory impairment [Not Recovered/Not Resolved]
  - Cystitis [Recovered/Resolved]
  - Taste disorder [Not Recovered/Not Resolved]
  - Loss of personal independence in daily activities [Not Recovered/Not Resolved]
  - Hypoaesthesia [Not Recovered/Not Resolved]
  - Muscle rigidity [Not Recovered/Not Resolved]
  - Stoma site discharge [Recovered/Resolved]

NARRATIVE: CASE EVENT DATE: 2019
